FAERS Safety Report 7503379-7 (Version None)
Quarter: 2011Q2

REPORT INFORMATION
  Report Type: 
  Country: None (occurrence: None)
  Receive Date: 20110525
  Receipt Date: 20110517
  Transmission Date: 20111010
  Serious: Yes (Hospitalization)
  Sender: FDA-Public Use
  Company Number: A0927594A

PATIENT
  Age: 65 Year
  Sex: Male

DRUGS (9)
  1. WATER PILL [Concomitant]
  2. LISINOPRIL [Concomitant]
  3. PERCOCET [Concomitant]
  4. SPIRIVA [Concomitant]
  5. GLYBURIDE [Concomitant]
  6. VERAPAMIL [Concomitant]
  7. XOPENEX [Concomitant]
  8. DIGOXIN [Concomitant]
  9. ADVAIR DISKUS 100/50 [Suspect]
     Indication: CHRONIC OBSTRUCTIVE PULMONARY DISEASE
     Dosage: 1PUFF TWICE PER DAY
     Route: 055

REACTIONS (2)
  - BRONCHITIS [None]
  - PNEUMONIA [None]
